FAERS Safety Report 24426369 (Version 1)
Quarter: 2024Q4

REPORT INFORMATION
  Report Type: Spontaneous
  Country: US (occurrence: US)
  Receive Date: 20241011
  Receipt Date: 20241011
  Transmission Date: 20250114
  Serious: Yes (Death, Life-Threatening, Hospitalization)
  Sender: Unknown Manufacturer
  Company Number: US-MLMSERVICE-20240923-PI202870-00218-1

PATIENT
  Sex: Male

DRUGS (2)
  1. LEVETIRACETAM [Suspect]
     Active Substance: LEVETIRACETAM
     Indication: Seizure
  2. METHOTREXATE [Suspect]
     Active Substance: METHOTREXATE
     Indication: Psoriatic arthropathy
     Dosage: DAILY SIX DAYS PER WEEK FOR AT LEAST A FEW MONTHS

REACTIONS (8)
  - Toxicity to various agents [Fatal]
  - Epidermal necrosis [Unknown]
  - Drug interaction [Unknown]
  - Stomatitis [Unknown]
  - Multiple organ dysfunction syndrome [Fatal]
  - Hypertransaminasaemia [Fatal]
  - Acute kidney injury [Fatal]
  - Pancytopenia [Unknown]
